FAERS Safety Report 24978757 (Version 1)
Quarter: 2025Q1

REPORT INFORMATION
  Report Type: Spontaneous
  Country: US (occurrence: US)
  Receive Date: 20250218
  Receipt Date: 20250218
  Transmission Date: 20250408
  Serious: No
  Sender: ELI LILLY AND COMPANY
  Company Number: US-ELI_LILLY_AND_COMPANY-US202501021202

PATIENT
  Age: 67 Year
  Sex: Male

DRUGS (2)
  1. REYVOW [Suspect]
     Active Substance: LASMIDITAN
     Indication: Migraine
     Route: 065
  2. NURTEC ODT [Concomitant]
     Active Substance: RIMEGEPANT SULFATE
     Indication: Headache
     Route: 065

REACTIONS (6)
  - Loss of personal independence in daily activities [Unknown]
  - Toxicity to various agents [Unknown]
  - Migraine [Unknown]
  - Disturbance in attention [Unknown]
  - Balance disorder [Unknown]
  - Gait disturbance [Unknown]
